FAERS Safety Report 5078533-7 (Version None)
Quarter: 2006Q3

REPORT INFORMATION
  Report Type: 
  Country: None (occurrence: None)
  Receive Date: 20060808
  Receipt Date: 20060724
  Transmission Date: 20061208
  Serious: Yes (Life-Threatening, Disabling)
  Sender: FDA-Public Use
  Company Number: 2203

PATIENT
  Age: 45 Year
  Sex: Female
  Weight: 98.4306 kg

DRUGS (11)
  1. AVINZA [Suspect]
     Indication: PAIN
     Dosage: 120 MG BID PO
     Route: 048
     Dates: start: 20060101
  2. AVINZA [Suspect]
     Indication: SYSTEMIC LUPUS ERYTHEMATOSUS
     Dosage: 120 MG BID PO
     Route: 048
     Dates: start: 20060101
  3. CYCLOBENZAPRINE HCL [Concomitant]
  4. DILTIAZEM HYDROCHLORIDE [Concomitant]
  5. ESCITALOPRAM OXALATE [Concomitant]
  6. GABAPENTIN [Concomitant]
  7. MIRTAZAPINE [Concomitant]
  8. NAPROXEN [Concomitant]
  9. OXYCODONE LIQUID [Concomitant]
  10. TEMAZEPAM [Concomitant]
  11. ZAFIRLUKAST [Concomitant]

REACTIONS (3)
  - CUSHING'S SYNDROME [None]
  - HYPERTENSION [None]
  - OEDEMA [None]
